FAERS Safety Report 8625456-X (Version None)
Quarter: 2012Q3

REPORT INFORMATION
  Report Type: 
  Country: None (occurrence: None)
  Receive Date: 20120827
  Receipt Date: 20120820
  Transmission Date: 20120928
  Serious: Yes (Other)
  Sender: FDA-Public Use
  Company Number: BR-ABBOTT-12P-020-0971167-00

PATIENT
  Sex: Male
  Weight: 84 kg

DRUGS (4)
  1. ZYPREXA [Concomitant]
     Indication: SCHIZOPHRENIA
     Route: 048
     Dates: start: 20040101
  2. DIAZEPAM [Concomitant]
     Indication: ANXIETY
     Route: 048
     Dates: start: 20040101
  3. LITHIUM CARBONATE [Concomitant]
     Indication: AFFECTIVE DISORDER
     Route: 048
     Dates: start: 20100101
  4. DEPAKENE [Suspect]
     Indication: PRODUCT USED FOR UNKNOWN INDICATION
     Route: 048
     Dates: start: 20120706

REACTIONS (13)
  - SOMNOLENCE [None]
  - DYSPNOEA [None]
  - CONVULSION [None]
  - DECREASED APPETITE [None]
  - VOMITING [None]
  - HEPATIC PAIN [None]
  - RENAL PAIN [None]
  - PALPITATIONS [None]
  - NAUSEA [None]
  - HEADACHE [None]
  - HYPERTENSION [None]
  - SPINAL PAIN [None]
  - DRUG INEFFECTIVE [None]
